FAERS Safety Report 8659552 (Version 3)
Quarter: 2013Q1

REPORT INFORMATION
  Report Type: Spontaneous
  Country: BR (occurrence: BR)
  Receive Date: 20120711
  Receipt Date: 20130219
  Transmission Date: 20140127
  Serious: Yes (Other)
  Sender: FDA-Public Use
  Company Number: PHHY2012BR058458

PATIENT
  Sex: Male

DRUGS (9)
  1. DIOVAN [Suspect]
     Indication: BLOOD PRESSURE
     Dosage: 1 DF, 320 MG, DAILY
     Route: 048
     Dates: start: 201109
  2. DIOVAN [Suspect]
     Dosage: 2 DF, 160 MG , DAILY
     Route: 048
  3. DIOVAN HCT [Suspect]
     Dosage: 320/12.5 MG, UNK
  4. OLCADIL [Concomitant]
     Indication: ANXIETY
     Dosage: 4 MG, HALF TABLET
     Route: 048
  5. ZOLADEX [Concomitant]
     Indication: PROSTATE CANCER
     Dosage: 10.8 MG, (1 APPLICATION EACH 3 MONTHS)
  6. METFORMIN [Concomitant]
     Indication: DIABETES MELLITUS
     Dosage: 2 DF,  DAILY, 850 MG
     Route: 048
     Dates: start: 201107
  7. MANIVASC [Concomitant]
     Indication: BLOOD PRESSURE INADEQUATELY CONTROLLED
     Dosage: 1 DF, DAILY
     Route: 048
  8. SERTRALINE [Concomitant]
     Indication: DEPRESSION
     Dosage: 1 DF, DAILY
  9. INDAPEN [Concomitant]
     Indication: BLOOD PRESSURE
     Dosage: 1 DF, DAILY
     Route: 048

REACTIONS (3)
  - Prostate cancer recurrent [Not Recovered/Not Resolved]
  - Glycosylated haemoglobin increased [Unknown]
  - Blood glucose abnormal [Not Recovered/Not Resolved]
